FAERS Safety Report 21223231 (Version 1)
Quarter: 2022Q3

REPORT INFORMATION
  Report Type: Other
  Country: US (occurrence: None)
  Receive Date: 20220817
  Receipt Date: 20220817
  Transmission Date: 20221027
  Serious: No
  Sender: FDA-Public Use
  Company Number: US-ROCHE-3161099

PATIENT
  Sex: Female

DRUGS (5)
  1. OCREVUS [Suspect]
     Active Substance: OCRELIZUMAB
     Indication: Multiple sclerosis
     Dosage: YES
     Route: 065
     Dates: start: 20220106
  2. DOXYCYCLINE [Concomitant]
     Active Substance: DOXYCYCLINE
  3. LEXAPRO [Concomitant]
     Active Substance: ESCITALOPRAM OXALATE
  4. TAMSULOSIN [Concomitant]
     Active Substance: TAMSULOSIN
  5. VUMERITY [Concomitant]
     Active Substance: DIROXIMEL FUMARATE

REACTIONS (1)
  - COVID-19 [Recovered/Resolved]
